FAERS Safety Report 6776080 (Version 6)
Quarter: 2012Q4

REPORT INFORMATION
  Report Type: 
  Country: CN (occurrence: CN)
  Receive Date: 20081001
  Receipt Date: 20121220
  Transmission Date: 20130627
  Serious: Yes (Life-Threatening)
  Sender: FDA-Public Use
  Company Number: PHHY2008CN22743

PATIENT
  Age: 25 None
  Sex: Male
  Weight: 60 kg

DRUGS (6)
  1. SEBIVO [Suspect]
     Indication: HEPATITIS B
     Dosage: 600 mg, QD
     Route: 048
     Dates: start: 20071027, end: 20080926
  2. ENTECAVIR [Concomitant]
  3. CROCI STIGMA [Concomitant]
  4. FLUID/ELECTROLYTE REPLACEMENT THERAPY [Concomitant]
  5. DIURETICS [Concomitant]
  6. DIAMMONIUM GLYCYRRHIZINATE [Concomitant]

REACTIONS (45)
  - Rhabdomyolysis [Recovered/Resolved]
  - Circulatory collapse [Recovered/Resolved]
  - Renal failure acute [Recovered/Resolved]
  - Multi-organ failure [Recovered/Resolved]
  - Loss of consciousness [Recovered/Resolved]
  - Muscle disorder [Recovered/Resolved]
  - Pain [Unknown]
  - Aspartate aminotransferase increased [Recovering/Resolving]
  - Alanine aminotransferase increased [Recovering/Resolving]
  - Blood creatine phosphokinase increased [Recovering/Resolving]
  - Dyspnoea [Recovered/Resolved]
  - Fatigue [Recovered/Resolved]
  - Jaundice [Recovered/Resolved]
  - Anuria [Recovered/Resolved]
  - Hypotension [Recovered/Resolved]
  - Blood creatinine increased [Recovered/Resolved]
  - Blood urea increased [Recovered/Resolved]
  - Myalgia [Recovered/Resolved]
  - Blood lactic acid increased [Recovered/Resolved]
  - Myoglobin blood increased [Recovered/Resolved]
  - Blood creatine phosphokinase MB increased [Recovered/Resolved]
  - Pain in extremity [Unknown]
  - Chest discomfort [Unknown]
  - Palpitations [Recovering/Resolving]
  - Somnolence [Recovering/Resolving]
  - Asthma [Recovering/Resolving]
  - Sinus tachycardia [Recovering/Resolving]
  - Hyperlipidaemia [Unknown]
  - Nausea [Unknown]
  - Acute respiratory failure [Unknown]
  - Lung infection [Unknown]
  - Metabolic acidosis [Recovering/Resolving]
  - Mood altered [Unknown]
  - Decreased appetite [Unknown]
  - Urinary retention [Recovering/Resolving]
  - Constipation [Unknown]
  - White blood cell count increased [Unknown]
  - Neutrophil count increased [Unknown]
  - Platelet count increased [Unknown]
  - Red blood cell count decreased [Unknown]
  - Haemoglobin increased [Unknown]
  - Blood lactate dehydrogenase increased [Unknown]
  - Arrhythmia [Unknown]
  - Myopathy [Unknown]
  - Mitochondrial toxicity [Recovered/Resolved]
